FAERS Safety Report 21411781 (Version 2)
Quarter: 2022Q4

REPORT INFORMATION
  Report Type: Spontaneous
  Country: US (occurrence: US)
  Receive Date: 20221005
  Receipt Date: 20221012
  Transmission Date: 20230112
  Serious: Yes (Other)
  Sender: FDA-Public Use
  Company Number: US-JNJFOC-20220962260

PATIENT
  Age: 46 Year
  Sex: Female
  Weight: 95.340 kg

DRUGS (2)
  1. RISPERDAL [Suspect]
     Active Substance: RISPERIDONE
     Indication: Schizoaffective disorder
     Route: 065
  2. RISPERDAL [Suspect]
     Active Substance: RISPERIDONE
     Indication: Bipolar disorder

REACTIONS (6)
  - Diabetes mellitus [Unknown]
  - Polycystic ovaries [Unknown]
  - Blood prolactin increased [Unknown]
  - Insomnia [Unknown]
  - Increased appetite [Unknown]
  - Blood cholesterol increased [Unknown]
